FAERS Safety Report 8777042 (Version 2)
Quarter: 2012Q4

REPORT INFORMATION
  Report Type: 
  Country: GB (occurrence: GB)
  Receive Date: 20120911
  Receipt Date: 20121101
  Transmission Date: 20130627
  Serious: Yes (Hospitalization)
  Sender: FDA-Public Use
  Company Number: GB-TEVA-357773ISR

PATIENT
  Age: 74 Year
  Sex: Male

DRUGS (14)
  1. PREDNISOLONE [Suspect]
     Indication: PROSTATE CANCER METASTATIC
     Dosage: 10 Milligram Daily;
  2. ABIRATERONE ACETATE [Suspect]
     Indication: PROSTATE CANCER METASTATIC
     Dosage: 1 Gram Daily;
     Route: 048
     Dates: start: 20110506
  3. CO-CODAMOL [Concomitant]
     Indication: PROSTATE CANCER METASTATIC
  4. ZOLADEX [Concomitant]
  5. NAPROXEN [Concomitant]
     Indication: PROSTATE CANCER METASTATIC
  6. OMEPRAZOLE [Concomitant]
     Indication: PROPHYLAXIS
     Dosage: 20 Milligram Daily;
  7. RAMIPRIL [Concomitant]
     Indication: MYOCARDIAL ISCHAEMIA
     Dosage: 10 Milligram Daily;
  8. ATORVASTATIN [Concomitant]
     Indication: BLOOD CHOLESTEROL
     Dosage: 40 Milligram Daily;
  9. ATORVASTATIN [Concomitant]
     Indication: MYOCARDIAL ISCHAEMIA
     Dosage: 40mg in 1 day
  10. AMLODIPINE [Concomitant]
     Indication: MYOCARDIAL ISCHAEMIA
     Dosage: 5 Milligram Daily;
  11. DOXAZOSIN [Concomitant]
     Indication: MYOCARDIAL ISCHAEMIA
     Dosage: 1 Milligram Daily;
  12. METFORMIN [Concomitant]
     Indication: DIABETES MELLITUS
     Dosage: 2250 Milligram Daily;
  13. PARACETAMOL [Concomitant]
     Indication: PROSTATE CANCER METASTATIC
     Dosage: 6 Dosage forms Daily;
  14. NOVOMIX [Concomitant]
     Indication: DIABETES MELLITUS
     Dosage: in 2 day

REACTIONS (2)
  - Injury [Recovered/Resolved]
  - Rib fracture [Recovered/Resolved]
